FAERS Safety Report 23614592 (Version 1)
Quarter: 2024Q1

REPORT INFORMATION
  Report Type: Spontaneous
  Country: FR (occurrence: FR)
  Receive Date: 20240311
  Receipt Date: 20240311
  Transmission Date: 20240409
  Serious: Yes (Other)
  Sender: FDA-Public Use
  Company Number: FR-BRISTOL-MYERS SQUIBB COMPANY-2024-028977

PATIENT
  Age: 63 Year
  Sex: Male
  Weight: 67 kg

DRUGS (5)
  1. BEVACIZUMAB [Suspect]
     Active Substance: BEVACIZUMAB
     Indication: Product used for unknown indication
     Dosage: 312.5 MG, 1X/DAY(FREQ:24 H)
     Route: 065
     Dates: start: 20221005
  2. TRIFLURIDINE [Suspect]
     Active Substance: TRIFLURIDINE
     Indication: Chemotherapy
     Dosage: 110 MG, 1X/DAY(FREQ:24 H;)
     Route: 065
     Dates: start: 20230515
  3. SPIRONOLACTONE [Concomitant]
     Active Substance: SPIRONOLACTONE
     Indication: Oedema peripheral
     Dosage: 25 MG, 1X/DAY(FREQ:24 H;)
     Dates: start: 20230704
  4. APIXABAN [Concomitant]
     Active Substance: APIXABAN
     Indication: Embolism venous
     Dosage: 2X/DAY
     Dates: start: 20221122
  5. FUROSEMIDE [Concomitant]
     Active Substance: FUROSEMIDE
     Indication: Oedema peripheral
     Dosage: 20 MG, 1X/DAY(FREQ:24 H;)
     Dates: start: 20230704

REACTIONS (1)
  - Anaemia [Recovered/Resolved]

NARRATIVE: CASE EVENT DATE: 20230712
